FAERS Safety Report 13863013 (Version 1)
Quarter: 2017Q3

REPORT INFORMATION
  Report Type: Spontaneous
  Country: DE (occurrence: DE)
  Receive Date: 20170814
  Receipt Date: 20170814
  Transmission Date: 20171127
  Serious: Yes (Other)
  Sender: FDA-Public Use
  Company Number: DE-AUROBINDO-AUR-APL-2017-38646

PATIENT
  Age: 52 Year
  Sex: Male

DRUGS (1)
  1. LAMOTRIGINE AUROBINDO TABLETS 50MG [Suspect]
     Active Substance: LAMOTRIGINE
     Indication: EPILEPSY
     Dosage: STARTING WITH 25 MG I DAY, LAST DOSE 50 MG/DAY
     Route: 048
     Dates: start: 20170708, end: 20170722

REACTIONS (7)
  - Headache [Not Recovered/Not Resolved]
  - Aggression [Recovered/Resolved]
  - Skin sensitisation [Recovered/Resolved]
  - Seizure [Recovered/Resolved]
  - Depression [Recovered/Resolved]
  - Flashback [Recovered/Resolved]
  - Visual impairment [Not Recovered/Not Resolved]

NARRATIVE: CASE EVENT DATE: 20170708
